FAERS Safety Report 17041875 (Version 2)
Quarter: 2019Q4

REPORT INFORMATION
  Report Type: Spontaneous
  Country: US (occurrence: US)
  Receive Date: 20191118
  Receipt Date: 20191213
  Transmission Date: 20200122
  Serious: No
  Sender: FDA-Public Use
  Company Number: US-ASTRAZENECA-2019SF55466

PATIENT
  Age: 24250 Day
  Sex: Male
  Weight: 95.3 kg

DRUGS (1)
  1. BYDUREON [Suspect]
     Active Substance: EXENATIDE
     Indication: GLYCOSYLATED HAEMOGLOBIN
     Route: 058

REACTIONS (5)
  - Device issue [Unknown]
  - Incorrect dose administered by device [Recovered/Resolved]
  - Extra dose administered [Unknown]
  - Malaise [Not Recovered/Not Resolved]
  - Nausea [Unknown]

NARRATIVE: CASE EVENT DATE: 20191027
